FAERS Safety Report 7244131-X (Version None)
Quarter: 2011Q1

REPORT INFORMATION
  Report Type: 
  Country: None (occurrence: None)
  Receive Date: 20110125
  Receipt Date: 20110114
  Transmission Date: 20110831
  Serious: Yes (Other)
  Sender: FDA-Public Use
  Company Number: PHHY2011CA03416

PATIENT
  Sex: Female

DRUGS (2)
  1. BLOOD TRANSFUSION, AUXILIARY PRODUCTS [Concomitant]
     Dosage: UNK
     Dates: start: 20101216
  2. ZOMETA [Suspect]
     Indication: BREAST CANCER
     Dosage: 4 MG
     Route: 042
     Dates: start: 20100121, end: 20101101

REACTIONS (5)
  - RENAL DISORDER [None]
  - ASTHENIA [None]
  - TREMOR [None]
  - DYSGRAPHIA [None]
  - ANAEMIA [None]
